FAERS Safety Report 7601981-5 (Version None)
Quarter: 2011Q3

REPORT INFORMATION
  Report Type: 
  Country: None (occurrence: None)
  Receive Date: 20110711
  Receipt Date: 20110706
  Transmission Date: 20111222
  Serious: Yes (Other)
  Sender: FDA-Public Use
  Company Number: IE-PFIZER INC-2011139747

PATIENT
  Age: 54 Year
  Sex: Male

DRUGS (1)
  1. VARENICLINE TARTRATE [Suspect]
     Dosage: UNK
     Dates: start: 20110330, end: 20110424

REACTIONS (5)
  - HEADACHE [None]
  - DIZZINESS [None]
  - ANXIETY [None]
  - HYPERTENSION [None]
  - MALAISE [None]
